FAERS Safety Report 5086102-8 (Version None)
Quarter: 2006Q3

REPORT INFORMATION
  Report Type: 
  Country: None (occurrence: None)
  Receive Date: 20060818
  Receipt Date: 20060804
  Transmission Date: 20061208
  Serious: Yes (Hospitalization)
  Sender: FDA-Public Use
  Company Number: 06-000719

PATIENT
  Age: 58 Year
  Sex: Female

DRUGS (5)
  1. TACLONEX(CALCIPOTRIENE, BETAMETHASONE DIPROPIONATE) OINTMENT, .005/0.0 [Suspect]
     Indication: PSORIASIS
     Dosage: TID, TOPICAL
     Route: 061
     Dates: start: 20060501, end: 20060625
  2. DOVONEX [Suspect]
     Dosage: 0.005%, TOPICAL
     Route: 061
     Dates: start: 20060625, end: 20060703
  3. ATACAND [Concomitant]
  4. CARDENSIEL (BISOPROLOL FUMARATE) [Concomitant]
  5. LASIX [Concomitant]

REACTIONS (3)
  - DERMATITIS [None]
  - PSORIASIS [None]
  - SKIN TEST POSITIVE [None]
